FAERS Safety Report 6139044-0 (Version None)
Quarter: 2009Q1

REPORT INFORMATION
  Report Type: 
  Country: None (occurrence: None)
  Receive Date: 20090330
  Receipt Date: 20090323
  Transmission Date: 20090719
  Serious: Yes (Other)
  Sender: FDA-Public Use
  Company Number: A0768413A

PATIENT
  Age: 70 Year
  Sex: Male

DRUGS (3)
  1. SODIUM	FLUORIDE + POTASSIUM NITRATE TOOTHPASTE (SODIUM	FLUORIDE + POTA [Suspect]
     Indication: DENTAL CLEANING
     Dosage: DENTAL
     Route: 004
     Dates: start: 20090211
  2. SODIUM FLUORIDE TOOTHPASTE (SODIUM FLUORIDE) [Suspect]
     Indication: DENTAL CLEANING
     Dosage: DENTAL
     Route: 004
     Dates: start: 20090224
  3. OMEPRAZOLE [Concomitant]

REACTIONS (6)
  - ABDOMINAL PAIN UPPER [None]
  - ANAPHYLACTIC REACTION [None]
  - HEADACHE [None]
  - NASAL CONGESTION [None]
  - PARAESTHESIA [None]
  - TREMOR [None]
